FAERS Safety Report 5209663-4 (Version None)
Quarter: 2007Q1

REPORT INFORMATION
  Report Type: 
  Country: None (occurrence: None)
  Receive Date: 20070116
  Receipt Date: 20070105
  Transmission Date: 20070707
  Serious: Yes (Other)
  Sender: FDA-Public Use
  Company Number: SE-PFIZER INC-2006142369

PATIENT
  Age: 52 Year
  Sex: Female

DRUGS (1)
  1. DALACIN [Suspect]
     Indication: TOOTH INFECTION

REACTIONS (1)
  - HYPERSENSITIVITY [None]
